FAERS Safety Report 6392568-3 (Version None)
Quarter: 2009Q4

REPORT INFORMATION
  Report Type: 
  Country: None (occurrence: None)
  Receive Date: 20091007
  Receipt Date: 20090625
  Transmission Date: 20100525
  Serious: No
  Sender: FDA-Public Use
  Company Number: US-ALLERGAN-0908973US

PATIENT

DRUGS (1)
  1. LATISSE [Suspect]
     Indication: DRUG USE FOR UNKNOWN INDICATION
     Dosage: UNK, SINGLE
     Route: 061

REACTIONS (3)
  - ERYTHEMA [None]
  - PRURITUS [None]
  - RASH [None]
